FAERS Safety Report 21009873 (Version 1)
Quarter: 2022Q2

REPORT INFORMATION
  Report Type: Spontaneous
  Country: US (occurrence: None)
  Receive Date: 20220626
  Receipt Date: 20220626
  Transmission Date: 20220721
  Serious: Yes (Life-Threatening, Hospitalization)
  Sender: FDA-Public Use
  Company Number: None

PATIENT
  Age: 32 Year
  Sex: Female

DRUGS (3)
  1. SEYSARA [Suspect]
     Active Substance: SARECYCLINE HYDROCHLORIDE
     Indication: Acne
     Dosage: OTHER QUANTITY : 1 TABLET(S);?FREQUENCY : DAILY;?
     Route: 048
     Dates: start: 20220225, end: 20220319
  2. Women^s One-A-Day multivitamin [Concomitant]
  3. Zyrtec for allergies [Concomitant]

REACTIONS (9)
  - Headache [None]
  - Dizziness [None]
  - Loss of consciousness [None]
  - Hyperventilation [None]
  - Loss of consciousness [None]
  - Hypertension [None]
  - Heart rate decreased [None]
  - Cardiac arrest [None]
  - Therapy cessation [None]

NARRATIVE: CASE EVENT DATE: 20220318
